FAERS Safety Report 18094593 (Version 1)
Quarter: 2020Q3

REPORT INFORMATION
  Report Type: Spontaneous
  Country: NP (occurrence: NP)
  Receive Date: 20200731
  Receipt Date: 20200731
  Transmission Date: 20201103
  Serious: Yes (Other)
  Sender: FDA-Public Use
  Company Number: NP-QUAGEN-2020QUALIT00056

PATIENT
  Age: 55 Year
  Sex: Female

DRUGS (4)
  1. CETIRIZINE HYDROCHLORIDE ORAL SOLUTION USP, 5MG/5ML [Suspect]
     Active Substance: CETIRIZINE HYDROCHLORIDE
     Indication: PRURITUS
     Route: 065
  2. CLOBETASOL PROPIONATE. [Suspect]
     Active Substance: CLOBETASOL PROPIONATE
     Indication: PRURITUS
  3. PONATINIB [Concomitant]
     Active Substance: PONATINIB
     Indication: CHRONIC MYELOID LEUKAEMIA
     Route: 065
  4. PREDNISOLONE. [Interacting]
     Active Substance: PREDNISOLONE
     Indication: ERYTHEMA ANNULARE
     Route: 065

REACTIONS (1)
  - Disease progression [Recovering/Resolving]
